FAERS Safety Report 17418503 (Version 1)
Quarter: 2020Q1

REPORT INFORMATION
  Report Type: Report from Study
  Country: RO (occurrence: RO)
  Receive Date: 20200214
  Receipt Date: 20200214
  Transmission Date: 20200409
  Serious: Yes (Other)
  Sender: FDA-Public Use
  Company Number: RO-GILEAD-2020-0451022

PATIENT
  Age: 61 Year
  Sex: Female

DRUGS (2)
  1. FLECAINIDA [Concomitant]
     Dosage: UNK
  2. LEDIPASVIR/SOFOSBUVIR [Suspect]
     Active Substance: LEDIPASVIR\SOFOSBUVIR
     Indication: CHRONIC HEPATITIS C
     Dosage: 1 DOSAGE FORM, QD
     Route: 048
     Dates: start: 20190727, end: 20191018

REACTIONS (4)
  - Osteoporosis [Not Recovered/Not Resolved]
  - Patella fracture [Not Recovered/Not Resolved]
  - Fall [Unknown]
  - Arthralgia [Not Recovered/Not Resolved]

NARRATIVE: CASE EVENT DATE: 20200131
